FAERS Safety Report 6071959-4 (Version None)
Quarter: 2009Q1

REPORT INFORMATION
  Report Type: 
  Country: None (occurrence: None)
  Receive Date: 20090205
  Receipt Date: 20090205
  Transmission Date: 20090719
  Serious: Yes (Hospitalization, Disabling)
  Sender: FDA-Public Use
  Company Number: None

PATIENT
  Age: 77 Year
  Sex: Female
  Weight: 68 kg

DRUGS (3)
  1. BEVACIZUMAB 10MG/KG GENENTECH [Suspect]
     Indication: PANCREATIC CARCINOMA METASTATIC
     Dosage: 680MG Q2WKS IV
     Route: 042
     Dates: start: 20080424, end: 20080703
  2. GEMCITABINE [Concomitant]
  3. DOCETAXEL [Concomitant]

REACTIONS (6)
  - BILE DUCT OBSTRUCTION [None]
  - CYSTITIS [None]
  - HAEMOBILIA [None]
  - HEPATIC NECROSIS [None]
  - METASTASES TO LIVER [None]
  - THROMBOSIS IN DEVICE [None]
